FAERS Safety Report 10448181 (Version 2)
Quarter: 2014Q4

REPORT INFORMATION
  Report Type: Spontaneous
  Country: JP (occurrence: JP)
  Receive Date: 20140911
  Receipt Date: 20141030
  Transmission Date: 20150528
  Serious: Yes (Other)
  Sender: FDA-Public Use
  Company Number: JP-GLAXOSMITHKLINE-B1029080A

PATIENT

DRUGS (6)
  1. PAZOPANIB [Suspect]
     Active Substance: PAZOPANIB
     Indication: LEIOMYOSARCOMA
     Dosage: 100 MG, QD
     Route: 048
     Dates: start: 20140405, end: 20140428
  2. LYRICA [Concomitant]
     Active Substance: PREGABALIN
     Indication: BACK PAIN
     Dosage: 150 MG, QD
     Dates: start: 20140101, end: 20140501
  3. ROIAN [Concomitant]
     Indication: WHITE BLOOD CELL COUNT DECREASED
     Dosage: 10 MG, TID
     Dates: start: 20140101, end: 20140501
  4. PARIET [Concomitant]
     Active Substance: RABEPRAZOLE SODIUM
     Indication: GASTROINTESTINAL DISORDER
     Dosage: 10 MG, QD
     Dates: start: 20140101, end: 20140501
  5. CALONAL [Concomitant]
     Active Substance: ACETAMINOPHEN
     Indication: BACK PAIN
     Dosage: 400 MG, TID
     Dates: start: 20140101, end: 20140501
  6. MAGLAX [Concomitant]
     Active Substance: MAGNESIUM OXIDE
     Indication: CONSTIPATION
     Dosage: 330 MG, TID
     Dates: start: 20140101, end: 20140501

REACTIONS (2)
  - Urinary bladder haemorrhage [Recovering/Resolving]
  - Urinary bladder haemorrhage [Recovering/Resolving]

NARRATIVE: CASE EVENT DATE: 20140409
